FAERS Safety Report 10252707 (Version 1)
Quarter: 2014Q2

REPORT INFORMATION
  Report Type: Spontaneous
  Country: GB (occurrence: GB)
  Receive Date: 20140623
  Receipt Date: 20140623
  Transmission Date: 20141212
  Serious: Yes (Disabling, Other)
  Sender: FDA-Public Use
  Company Number: GB-ASTRAZENECA-2014SE44144

PATIENT
  Sex: 0

DRUGS (2)
  1. MARCAIN HEAVY [Suspect]
     Indication: SPINAL ANAESTHESIA
     Route: 037
     Dates: start: 200808
  2. CHLORHEXIDINE [Suspect]
     Route: 065
     Dates: start: 200808

REACTIONS (4)
  - Spinal cord injury [Unknown]
  - Vascular injury [Unknown]
  - Arachnoiditis [Unknown]
  - Accidental exposure to product [Unknown]
